FAERS Safety Report 10349684 (Version 1)
Quarter: 2014Q3

REPORT INFORMATION
  Report Type: Spontaneous
  Country: JP (occurrence: JP)
  Receive Date: 20140730
  Receipt Date: 20140730
  Transmission Date: 20150326
  Serious: Yes (Death)
  Sender: FDA-Public Use
  Company Number: JP-SA-2014SA099810

PATIENT
  Age: 4 Year
  Sex: Male
  Weight: 13.2 kg

DRUGS (1)
  1. CEREZYME [Suspect]
     Active Substance: IMIGLUCERASE
     Indication: GAUCHER^S DISEASE
     Dosage: 92 U\KG ON 11JUL2014
     Route: 042
     Dates: start: 20110901, end: 20140711

REACTIONS (1)
  - Death [Fatal]

NARRATIVE: CASE EVENT DATE: 20140715
